FAERS Safety Report 15249787 (Version 3)
Quarter: 2018Q3

REPORT INFORMATION
  Report Type: Spontaneous
  Country: US (occurrence: US)
  Receive Date: 20180807
  Receipt Date: 20180905
  Transmission Date: 20181010
  Serious: No
  Sender: FDA-Public Use
  Company Number: US-ASTRAZENECA-2018SF00149

PATIENT
  Age: 20946 Day
  Sex: Female
  Weight: 79.4 kg

DRUGS (1)
  1. BYDUREON BCISE [Suspect]
     Active Substance: EXENATIDE
     Indication: TYPE 2 DIABETES MELLITUS
     Route: 058
     Dates: start: 20180803

REACTIONS (6)
  - Injection site pain [Unknown]
  - Device malfunction [Unknown]
  - Procedural nausea [Unknown]
  - Procedural pain [Unknown]
  - Dysphagia [Unknown]
  - Injection site injury [Unknown]

NARRATIVE: CASE EVENT DATE: 20180803
